FAERS Safety Report 12909457 (Version 1)
Quarter: 2016Q4

REPORT INFORMATION
  Report Type: Spontaneous
  Country: US (occurrence: US)
  Receive Date: 20161104
  Receipt Date: 20161104
  Transmission Date: 20170207
  Serious: No
  Sender: FDA-Public Use
  Company Number: US-LEO PHARMA-244581

PATIENT
  Sex: Male

DRUGS (1)
  1. PICATO [Suspect]
     Active Substance: INGENOL MEBUTATE
     Indication: PRECANCEROUS SKIN LESION
     Route: 061
     Dates: start: 20161030

REACTIONS (5)
  - Drug administration error [Unknown]
  - Application site pain [Recovering/Resolving]
  - Application site vesicles [Not Recovered/Not Resolved]
  - Application site erythema [Not Recovered/Not Resolved]
  - Incorrect dose administered [Unknown]
